FAERS Safety Report 6414704-2 (Version None)
Quarter: 2009Q4

REPORT INFORMATION
  Report Type: 
  Country: None (occurrence: None)
  Receive Date: 20091021
  Receipt Date: 20091005
  Transmission Date: 20100525
  Serious: Yes (Other)
  Sender: FDA-Public Use
  Company Number: 2009S1007732

PATIENT
  Age: 68 Year
  Sex: Male
  Weight: 84.369 kg

DRUGS (7)
  1. PHOSPHOSODA FLAVOR NOT SPECIFIED [Suspect]
     Indication: COLONOSCOPY
     Dosage: 45 ML;X1; PO
     Route: 048
     Dates: start: 20050324, end: 20050324
  2. CLONAZEPAM [Concomitant]
  3. TERAZOSIN HCL [Concomitant]
  4. DETROL [Concomitant]
  5. PROSCAR [Concomitant]
  6. ASPIRIN [Concomitant]
  7. SODIUM CHLORIDE [Concomitant]

REACTIONS (5)
  - ARTERIOSCLEROSIS [None]
  - DEHYDRATION [None]
  - RENAL FAILURE ACUTE [None]
  - RENAL FAILURE CHRONIC [None]
  - RENAL TUBULAR NECROSIS [None]
